FAERS Safety Report 6274436-0 (Version None)
Quarter: 2009Q3

REPORT INFORMATION
  Report Type: 
  Country: None (occurrence: None)
  Receive Date: 20090716
  Receipt Date: 20090709
  Transmission Date: 20100115
  Serious: Yes (Other)
  Sender: FDA-Public Use
  Company Number: DSA_33992_2009

PATIENT
  Sex: Male

DRUGS (4)
  1. ATIVAN [Suspect]
     Indication: DRUG USE FOR UNKNOWN INDICATION
     Dosage: 2 MG BID
     Dates: start: 19940101
  2. ZOLOFT [Concomitant]
  3. ZYRTEC [Concomitant]
  4. LIPITOR [Concomitant]

REACTIONS (6)
  - ANXIETY [None]
  - APNOEA [None]
  - CHRONIC OBSTRUCTIVE PULMONARY DISEASE [None]
  - DRUG INEFFECTIVE [None]
  - INSOMNIA [None]
  - RASH PRURITIC [None]
